FAERS Safety Report 18461279 (Version 1)
Quarter: 2020Q4

REPORT INFORMATION
  Report Type: Spontaneous
  Country: FR (occurrence: FR)
  Receive Date: 20201104
  Receipt Date: 20201104
  Transmission Date: 20210114
  Serious: Yes (Other)
  Sender: FDA-Public Use
  Company Number: FR-ADVANZ PHARMA-202011009938

PATIENT

DRUGS (1)
  1. ALITRETINOIN [Suspect]
     Active Substance: ALITRETINOIN
     Indication: CUTANEOUS AMYLOIDOSIS
     Dosage: 30 MG, QD (TOCTINO 30 MG, CAPSULE MOLLE)
     Route: 048
     Dates: start: 20200710, end: 20200714

REACTIONS (2)
  - Insomnia [Recovered/Resolved]
  - Headache [Recovered/Resolved]

NARRATIVE: CASE EVENT DATE: 20200710
